FAERS Safety Report 9168965 (Version 4)
Quarter: 2013Q2

REPORT INFORMATION
  Report Type: Spontaneous
  Country: US (occurrence: US)
  Receive Date: 20130318
  Receipt Date: 20130606
  Transmission Date: 20140414
  Serious: Yes (Other)
  Sender: FDA-Public Use
  Company Number: US-PFIZER INC-2013086982

PATIENT
  Age: 84 Year
  Sex: Female
  Weight: 74.83 kg

DRUGS (25)
  1. LIPITOR [Suspect]
     Indication: BLOOD CHOLESTEROL INCREASED
     Dosage: 10 MG, 1X/DAY (AT NIGHT)
     Dates: start: 2003
  2. LIPITOR [Suspect]
     Dosage: 20 MG, 1X/DAY
     Route: 048
     Dates: end: 20130317
  3. LOSARTAN [Suspect]
     Indication: HYPERTENSION
     Dosage: 10 MG, UNK
  4. PRAVASTATIN SODIUM [Suspect]
     Indication: BLOOD CHOLESTEROL INCREASED
     Dosage: UNK
  5. SIMVASTATIN [Suspect]
     Indication: BLOOD CHOLESTEROL INCREASED
     Dosage: UNK
  6. ZOCOR [Suspect]
     Indication: BLOOD CHOLESTEROL INCREASED
     Dosage: 40 MG, 1X/DAY
     Route: 048
  7. COZAAR [Concomitant]
     Indication: HYPERTENSION
     Dosage: 100 MG, DAILY
     Route: 048
  8. SPIRONOLACTONE [Concomitant]
     Indication: DIURETIC THERAPY
     Dosage: 25 MG, DAILY
     Route: 048
  9. METOPROLOL [Concomitant]
     Indication: HYPERTENSION
     Dosage: UNK, 2X/DAY
  10. OMEPRAZOLE [Concomitant]
     Indication: GASTROOESOPHAGEAL REFLUX DISEASE
     Dosage: UNK
  11. JANUVIA [Concomitant]
     Indication: DIABETES MELLITUS
     Dosage: 100 MG, 1X/DAY
     Route: 048
  12. METFORMIN [Concomitant]
     Indication: DIABETES MELLITUS
     Dosage: 250 MG, 2X/DAY
  13. GLYBURIDE [Concomitant]
     Indication: DIABETES MELLITUS
     Dosage: 1.5 MG, DAILY
  14. GLYBURIDE [Concomitant]
     Dosage: TWO 5 MG TABLETS, 2X/DAY
     Route: 048
  15. ASPIRIN [Concomitant]
     Dosage: UNK
  16. MULTIVITAMINS [Concomitant]
     Dosage: UNK
  17. VITAMIN D [Concomitant]
     Dosage: UNK
  18. FISH OIL [Concomitant]
     Dosage: 1000 MG, 1X/DAY
     Route: 048
  19. FLAXSEED [Concomitant]
     Dosage: UNK
  20. HYDROCHLOROTHIAZIDE [Concomitant]
     Dosage: 12.5 MG, 1X/DAY
     Route: 048
  21. KLONOPIN [Concomitant]
     Dosage: 0.5 MG, 1 PO BID PRN
     Route: 048
  22. LEVOTHYROXINE [Concomitant]
     Dosage: 112 UG, 1X/DAY
     Route: 048
  23. LOPRESSOR [Concomitant]
     Dosage: 50 MG, 2X/DAY
     Route: 048
  24. PROTONIX [Concomitant]
     Dosage: 40 MG, DAILY
     Route: 048
  25. VITAMIN D3 [Concomitant]
     Dosage: 1000 IU, DAILY
     Route: 048

REACTIONS (12)
  - Diabetes mellitus [Unknown]
  - Road traffic accident [Unknown]
  - Cardiac disorder [Unknown]
  - Arthropathy [Unknown]
  - Hearing impaired [Unknown]
  - Hypertension [Unknown]
  - Thyroid disorder [Unknown]
  - Drug ineffective [Unknown]
  - Drug hypersensitivity [Unknown]
  - Lip blister [Recovered/Resolved]
  - Myalgia [Recovered/Resolved]
  - Arthralgia [Recovered/Resolved]
